FAERS Safety Report 5672089-3 (Version None)
Quarter: 2008Q2

REPORT INFORMATION
  Report Type: 
  Country: None (occurrence: None)
  Receive Date: 20080219
  Receipt Date: 20071127
  Transmission Date: 20081010
  Serious: No
  Sender: FDA-Public Use
  Company Number: TPA2007A02417

PATIENT
  Age: 68 Year
  Sex: Male
  Weight: 97.0698 kg

DRUGS (26)
  1. ROZEREM [Suspect]
     Indication: INSOMNIA
     Dosage: 8 MG, QHS, PER ORAL
     Route: 048
     Dates: start: 20070801, end: 20070101
  2. DEMADEX [Concomitant]
  3. COREG [Concomitant]
  4. GLIPIZIDE [Concomitant]
  5. ACIPHEX [Concomitant]
  6. COLACE (DOCUSATE SODIUM) [Concomitant]
  7. ASPIRIN [Concomitant]
  8. ACETAMINOPHEN [Concomitant]
  9. ADVAIR DISKUS (FLUTICASONE PROPIONATE, SALMETEROL XINAFOATE) [Concomitant]
  10. FOLIC ACID [Concomitant]
  11. LISINOPRIL [Concomitant]
  12. SPIRIVA [Concomitant]
  13. PROSCAR [Concomitant]
  14. FLONASE (FLUTICASONE PROPIONATE) (INHALANT) [Concomitant]
  15. CLARITIN [Concomitant]
  16. CLONAZEPAM [Concomitant]
  17. VITAMIN B12 [Concomitant]
  18. SINEMET [Concomitant]
  19. FLOMAX [Concomitant]
  20. MORPHINE SULFATE [Concomitant]
  21. ZOLOFT [Concomitant]
  22. ZOCOR [Concomitant]
  23. TOPROL (METOPROLOL SUCCINATE) (25 MILLIGRAM, TABLETS) [Concomitant]
  24. OXYGEN (OXYGEN) [Concomitant]
  25. FIBERCON (POLYCARBOPHIL CALCIUM) [Concomitant]
  26. CENTRUM SILVER (ASCORBIC ACID, TOCOPHERYL ACETATE, RETINOL, ZINC, CALC [Concomitant]

REACTIONS (1)
  - DRUG INEFFECTIVE [None]
